FAERS Safety Report 7002300-8 (Version None)
Quarter: 2010Q3

REPORT INFORMATION
  Report Type: 
  Country: None (occurrence: None)
  Receive Date: 20100920
  Receipt Date: 20100708
  Transmission Date: 20110219
  Serious: No
  Sender: FDA-Public Use
  Company Number: US-ASTRAZENECA-2010SE31773

PATIENT
  Age: 52 Year
  Sex: Female
  Weight: 72.6 kg

DRUGS (6)
  1. SEROQUEL [Suspect]
     Indication: POST-TRAUMATIC STRESS DISORDER
     Route: 048
     Dates: start: 20000101, end: 20100101
  2. SEROQUEL [Suspect]
     Indication: BIPOLAR DISORDER
     Route: 048
     Dates: start: 20000101, end: 20100101
  3. SEROQUEL [Suspect]
     Route: 048
     Dates: start: 20100601, end: 20100707
  4. SEROQUEL [Suspect]
     Route: 048
     Dates: start: 20100601, end: 20100707
  5. SEROQUEL [Suspect]
     Route: 048
     Dates: start: 20100708
  6. SEROQUEL [Suspect]
     Route: 048
     Dates: start: 20100708

REACTIONS (6)
  - CONTUSION [None]
  - EXERCISE ELECTROCARDIOGRAM ABNORMAL [None]
  - INCORRECT DOSE ADMINISTERED [None]
  - INSOMNIA [None]
  - OEDEMA PERIPHERAL [None]
  - PAIN IN EXTREMITY [None]
